FAERS Safety Report 5993989-0 (Version None)
Quarter: 2008Q4

REPORT INFORMATION
  Report Type: 
  Country: None (occurrence: None)
  Receive Date: 20081212
  Receipt Date: 20081204
  Transmission Date: 20090506
  Serious: Yes (Hospitalization, Other)
  Sender: FDA-Public Use
  Company Number: US-AMGEN-QUU322041

PATIENT
  Sex: Female

DRUGS (6)
  1. NEULASTA [Suspect]
     Indication: CHEMOTHERAPY
  2. LEVOTHROID [Concomitant]
  3. DIOVAN [Concomitant]
  4. TOPOTECAN [Concomitant]
  5. DOXIL [Concomitant]
  6. CARBOPLATIN [Concomitant]

REACTIONS (6)
  - BONE PAIN [None]
  - EPISTAXIS [None]
  - MYOCARDIAL INFARCTION [None]
  - PLATELET COUNT DECREASED [None]
  - RED BLOOD CELL COUNT DECREASED [None]
  - WHITE BLOOD CELL COUNT DECREASED [None]
